FAERS Safety Report 6774952-9 (Version None)
Quarter: 2010Q2

REPORT INFORMATION
  Report Type: 
  Country: None (occurrence: None)
  Receive Date: 20100617
  Receipt Date: 20100614
  Transmission Date: 20101027
  Serious: Yes (Other)
  Sender: FDA-Public Use
  Company Number: FR-WYE-H14485710

PATIENT

DRUGS (3)
  1. METHOTREXATE [Interacting]
     Indication: NEOPLASM MALIGNANT
     Dosage: ADMINISTERED AT HIGH DOSE (MEAN: 6.34 G/M2
     Route: 042
  2. PIPERACILLIN AND TAZOBACTAM [Suspect]
  3. OMEPRAZOLE [Interacting]

REACTIONS (3)
  - CHEMOTHERAPEUTIC DRUG LEVEL INCREASED [None]
  - DRUG INTERACTION [None]
  - RENAL IMPAIRMENT [None]
